FAERS Safety Report 19960432 (Version 2)
Quarter: 2022Q1

REPORT INFORMATION
  Report Type: Report from Study
  Country: US (occurrence: US)
  Receive Date: 20211015
  Receipt Date: 20220115
  Transmission Date: 20220423
  Serious: Yes (Other)
  Sender: FDA-Public Use
  Company Number: US-REGENERON PHARMACEUTICALS, INC.-2021-93211

PATIENT
  Age: 60 Year
  Sex: Male

DRUGS (1)
  1. CASIRIVIMAB\IMDEVIMAB [Suspect]
     Active Substance: CASIRIVIMAB\IMDEVIMAB
     Indication: COVID-19
     Dosage: UNK, SINGLE
     Route: 042
     Dates: start: 20211009, end: 20211009

REACTIONS (4)
  - Feeling cold [Unknown]
  - Cold sweat [Unknown]
  - Dizziness [Unknown]
  - Blood pressure orthostatic abnormal [Unknown]

NARRATIVE: CASE EVENT DATE: 20211009
